FAERS Safety Report 4933497-9 (Version None)
Quarter: 2006Q1

REPORT INFORMATION
  Report Type: 
  Country: None (occurrence: None)
  Receive Date: 20060111
  Receipt Date: 20050406
  Transmission Date: 20060701
  Serious: Yes (Hospitalization)
  Sender: FDA-Public Use
  Company Number: A001-002-006452

PATIENT
  Sex: Male

DRUGS (1)
  1. ARICEPT [Suspect]

REACTIONS (1)
  - BRADYCARDIA [None]
